FAERS Safety Report 6026975-5 (Version None)
Quarter: 2009Q1

REPORT INFORMATION
  Report Type: 
  Country: None (occurrence: None)
  Receive Date: 20090105
  Receipt Date: 20081225
  Transmission Date: 20090719
  Serious: Yes (Life-Threatening)
  Sender: FDA-Public Use
  Company Number: JP-PFIZER INC-2009150205

PATIENT

DRUGS (2)
  1. DALACIN [Suspect]
     Dates: start: 20081222, end: 20081222
  2. METILON [Concomitant]

REACTIONS (1)
  - HYPOTENSION [None]
